FAERS Safety Report 9194286 (Version 4)
Quarter: 2013Q2

REPORT INFORMATION
  Report Type: Report from Study
  Country: CN (occurrence: CN)
  Receive Date: 20130327
  Receipt Date: 20130617
  Transmission Date: 20140414
  Serious: Yes (Hospitalization)
  Sender: FDA-Public Use
  Company Number: CN-GILEAD-2013-0072063

PATIENT
  Age: 38 Year
  Sex: Female

DRUGS (3)
  1. BLINDED ADEFOVIR DIPIVOXIL [Suspect]
     Indication: CHRONIC HEPATITIS B
     Dosage: UNK
     Dates: start: 20110511, end: 20120410
  2. BLINDED TENOFOVIR DISOPROXIL FUMARATE [Suspect]
     Indication: CHRONIC HEPATITIS B
     Dosage: UNK
     Dates: start: 20110511, end: 20120410
  3. TENOFOVIR DISOPROXIL FUMARATE [Suspect]
     Indication: CHRONIC HEPATITIS B
     Dosage: UNK
     Dates: start: 20120411

REACTIONS (1)
  - Hyperthyroidism [Recovered/Resolved]
